FAERS Safety Report 7015208-9 (Version None)
Quarter: 2010Q3

REPORT INFORMATION
  Report Type: 
  Country: None (occurrence: None)
  Receive Date: 20100927
  Receipt Date: 20100917
  Transmission Date: 20110219
  Serious: Yes (Hospitalization)
  Sender: FDA-Public Use
  Company Number: BR-ASTRAZENECA-2010SE44206

PATIENT
  Age: 54 Year
  Sex: Female
  Weight: 78 kg

DRUGS (10)
  1. NEXIUM [Suspect]
     Indication: GASTRITIS EROSIVE
     Route: 048
     Dates: start: 20000101
  2. SEROQUEL [Suspect]
     Indication: DEPRESSION
     Route: 048
     Dates: start: 20080101
  3. SEROQUEL [Suspect]
     Indication: INSOMNIA
     Route: 048
     Dates: start: 20080101
  4. LYRICA [Concomitant]
     Indication: FIBROMYALGIA
     Route: 048
     Dates: start: 20040101
  5. PURAN T4 [Concomitant]
     Indication: HYPOTHYROIDISM
     Route: 048
  6. TRAMADOL HCL [Concomitant]
     Indication: INTERVERTEBRAL DISC PROTRUSION
     Route: 048
     Dates: start: 20060101
  7. PROFENID [Concomitant]
     Indication: INTERVERTEBRAL DISC PROTRUSION
     Route: 048
     Dates: start: 20060101
  8. APRAZ [Concomitant]
     Indication: DEPRESSION
     Route: 048
     Dates: start: 20070101
  9. MORPHINE [Concomitant]
     Indication: FIBROMYALGIA
  10. FENTANYL [Concomitant]
     Indication: FIBROMYALGIA

REACTIONS (11)
  - BRONCHOPNEUMONIA [None]
  - CARDIO-RESPIRATORY ARREST [None]
  - DEPRESSION [None]
  - DIZZINESS [None]
  - DRY MOUTH [None]
  - FIBROMYALGIA [None]
  - INSOMNIA [None]
  - INTERVERTEBRAL DISC PROTRUSION [None]
  - NAUSEA [None]
  - OFF LABEL USE [None]
  - RESTLESS LEGS SYNDROME [None]
